FAERS Safety Report 7405796-2 (Version None)
Quarter: 2011Q2

REPORT INFORMATION
  Report Type: 
  Country: None (occurrence: None)
  Receive Date: 20110411
  Receipt Date: 20110404
  Transmission Date: 20111010
  Serious: Yes (Death)
  Sender: FDA-Public Use
  Company Number: FR-ROCHE-769293

PATIENT
  Sex: Female

DRUGS (4)
  1. ZARONTIN [Suspect]
     Dosage: STRENGTH: 250 MG/5ML
     Route: 048
     Dates: end: 20100716
  2. MICROPAKINE [Suspect]
     Indication: MYOCLONIC EPILEPSY
     Route: 048
     Dates: end: 20100716
  3. TOPIRAMATE [Suspect]
     Route: 048
     Dates: end: 20100716
  4. RIVOTRIL [Suspect]
     Route: 048

REACTIONS (5)
  - RHABDOMYOLYSIS [None]
  - ACUTE HEPATIC FAILURE [None]
  - HYPERTHERMIA [None]
  - STATUS EPILEPTICUS [None]
  - RENAL FAILURE ACUTE [None]
